FAERS Safety Report 8156162-6 (Version None)
Quarter: 2012Q1

REPORT INFORMATION
  Report Type: 
  Country: None (occurrence: None)
  Receive Date: 20120222
  Receipt Date: 20120216
  Transmission Date: 20120608
  Serious: Yes (Hospitalization, Other)
  Sender: FDA-Public Use
  Company Number: US-BAYER-200937401NA

PATIENT
  Age: 77 Year
  Sex: Male
  Weight: 126 kg

DRUGS (16)
  1. TRASYLOL [Suspect]
     Dosage: 25 ML, Q1HR
     Route: 042
     Dates: start: 20040715, end: 20040715
  2. ARTHROTEC [Concomitant]
     Dosage: 75 MG, BID
     Route: 048
  3. LIPITOR [Concomitant]
     Dosage: 20 MG, QD
     Route: 048
  4. NORVASC [Concomitant]
     Dosage: 10 MG, QD
     Route: 048
  5. AMIDATE [Concomitant]
     Dosage: 20 MG,IV PUSH X2
     Route: 042
     Dates: start: 20040715
  6. TRASYLOL [Suspect]
     Dosage: 100 ML, LOADING DOSE
     Route: 042
     Dates: start: 20040715, end: 20040715
  7. TRASYLOL [Suspect]
     Indication: CORONARY ARTERY BYPASS
     Route: 042
     Dates: start: 20040715
  8. PRECEDEX [Concomitant]
     Dosage: 18 ML, Q1HR, CONTINUOUS IV INFUSION
     Route: 042
     Dates: start: 20040715
  9. RED BLOOD CELLS [Concomitant]
     Dosage: 1 U, UNK
     Route: 042
     Dates: start: 20040715
  10. MICARDIS HCT [Concomitant]
     Dosage: 80/12.5 MG , QD
     Route: 048
  11. VERSED [Concomitant]
     Dosage: 10 MG, IV PUSH
     Route: 042
     Dates: start: 20040715
  12. NITROGLYCERIN [Concomitant]
     Dosage: 100 MCG, IV PUSH X3
     Route: 042
     Dates: start: 20040715
  13. ISOSORBIDE DINITRATE [Concomitant]
     Dosage: 60 G, QD
     Route: 048
  14. PAVULON [Concomitant]
     Dosage: 10 MG, IV PUSH
     Route: 042
     Dates: start: 20040715
  15. AVANDAMET [Concomitant]
     Dosage: 2/500 MG, BID
     Route: 048
  16. PRECEDEX [Concomitant]
     Dosage: 8 ML, Q1HR, CONTINUOUS IV INFUSION
     Route: 042
     Dates: start: 20040715

REACTIONS (5)
  - PAIN [None]
  - RENAL FAILURE ACUTE [None]
  - RENAL FAILURE [None]
  - INJURY [None]
  - UNEVALUABLE EVENT [None]
